FAERS Safety Report 7158564-3 (Version None)
Quarter: 2010Q4

REPORT INFORMATION
  Report Type: 
  Country: None (occurrence: None)
  Receive Date: 20101214
  Receipt Date: 20100524
  Transmission Date: 20110411
  Serious: No
  Sender: FDA-Public Use
  Company Number: US-ASTRAZENECA-2010SE23654

PATIENT
  Age: 69 Year
  Sex: Female
  Weight: 58.1 kg

DRUGS (6)
  1. CRESTOR [Suspect]
     Indication: BLOOD CHOLESTEROL INCREASED
     Route: 048
  2. LEVOTHYROXINE [Concomitant]
  3. FOSAMAX [Concomitant]
  4. VITAMIN TAB [Concomitant]
  5. KLONOPIN [Concomitant]
  6. FISH OIL [Concomitant]

REACTIONS (3)
  - BURNING SENSATION [None]
  - MYALGIA [None]
  - PAIN [None]
